FAERS Safety Report 16205277 (Version 1)
Quarter: 2019Q2

REPORT INFORMATION
  Report Type: Spontaneous
  Country: JP (occurrence: JP)
  Receive Date: 20190416
  Receipt Date: 20190416
  Transmission Date: 20190711
  Serious: Yes (Other)
  Sender: FDA-Public Use
  Company Number: JP-ROCHE-2264907

PATIENT
  Age: 80 Year
  Sex: Male
  Weight: 58 kg

DRUGS (3)
  1. ALECENSA [Suspect]
     Active Substance: ALECTINIB HYDROCHLORIDE
     Dosage: TWICE A DAY, TWICE A WEEK
     Route: 048
     Dates: start: 20190118
  2. ALECENSA [Suspect]
     Active Substance: ALECTINIB HYDROCHLORIDE
     Indication: NON-SMALL CELL LUNG CANCER
     Dosage: DOSAGE IS UNCERTAIN.
     Route: 048
     Dates: start: 20180712, end: 20181010
  3. ALECENSA [Suspect]
     Active Substance: ALECTINIB HYDROCHLORIDE
     Dosage: TWICE A DAY, THREE TIMES A WEEK
     Route: 048
     Dates: start: 20181011, end: 20190117

REACTIONS (6)
  - Ventricular arrhythmia [Recovered/Resolved]
  - Bradycardia [Not Recovered/Not Resolved]
  - Cardiac failure [Recovered/Resolved]
  - Pericardial effusion [Not Recovered/Not Resolved]
  - Aspartate aminotransferase increased [Recovered/Resolved]
  - Blood lactate dehydrogenase increased [Unknown]

NARRATIVE: CASE EVENT DATE: 20180920
